FAERS Safety Report 19580325 (Version 1)
Quarter: 2021Q3

REPORT INFORMATION
  Report Type: Report from Study
  Country: US (occurrence: US)
  Receive Date: 20210719
  Receipt Date: 20210719
  Transmission Date: 20211014
  Serious: Yes (Hospitalization, Other)
  Sender: FDA-Public Use
  Company Number: US-TAKEDA-2021TUS042954

PATIENT
  Age: 32 Year
  Sex: Female

DRUGS (8)
  1. TEDUGLUTIDE [Suspect]
     Active Substance: TEDUGLUTIDE
     Indication: SHORT-BOWEL SYNDROME
     Dosage: 3.8 MILLIGRAM (0.05MG/KG), QD
     Route: 065
     Dates: start: 20190302
  2. TEDUGLUTIDE [Suspect]
     Active Substance: TEDUGLUTIDE
     Indication: SHORT-BOWEL SYNDROME
     Dosage: 3.8 MILLIGRAM (0.05MG/KG), QD
     Route: 065
     Dates: start: 20190302
  3. ERTAPENEM. [Concomitant]
     Active Substance: ERTAPENEM SODIUM
  4. VANCOMYCIN [Concomitant]
     Active Substance: VANCOMYCIN
     Indication: BACTERAEMIA
     Dosage: 1.25 GRAM, TID
     Route: 042
     Dates: start: 20200303, end: 20200303
  5. TEDUGLUTIDE [Suspect]
     Active Substance: TEDUGLUTIDE
     Indication: SHORT-BOWEL SYNDROME
     Dosage: 3.8 MILLIGRAM (0.05MG/KG), QD
     Route: 065
     Dates: start: 20190302
  6. TEDUGLUTIDE [Suspect]
     Active Substance: TEDUGLUTIDE
     Indication: SHORT-BOWEL SYNDROME
     Dosage: 3.8 MILLIGRAM (0.05MG/KG), QD
     Route: 065
     Dates: start: 20190302
  7. ZOSYN [Concomitant]
     Active Substance: PIPERACILLIN SODIUM\TAZOBACTAM SODIUM
     Indication: BACTERAEMIA
     Dosage: 4.50 GRAM, TID
     Route: 042
     Dates: start: 20200302, end: 20200305
  8. VANCOMYCIN [Concomitant]
     Active Substance: VANCOMYCIN
     Dosage: 1.50 GRAM, BID
     Route: 042
     Dates: start: 20200302, end: 20200302

REACTIONS (1)
  - Enterobacter bacteraemia [Recovered/Resolved]

NARRATIVE: CASE EVENT DATE: 202002
